FAERS Safety Report 11579632 (Version 1)
Quarter: 2015Q3

REPORT INFORMATION
  Report Type: Spontaneous
  Country: BR (occurrence: BR)
  Receive Date: 20150930
  Receipt Date: 20150930
  Transmission Date: 20151125
  Serious: Yes (Other)
  Sender: FDA-Public Use
  Company Number: BR-ELI_LILLY_AND_COMPANY-BR201509006485

PATIENT
  Age: 71 Year
  Sex: Female
  Weight: 65 kg

DRUGS (5)
  1. LEVEMIR [Concomitant]
     Active Substance: INSULIN DETEMIR
     Dosage: UNK, UNKNOWN
     Route: 065
  2. HUMALOG [Suspect]
     Active Substance: INSULIN LISPRO
     Indication: TYPE 2 DIABETES MELLITUS
     Dosage: UNK UNK, BEFORE MEALS
     Route: 058
     Dates: start: 2001
  3. ENALAPRIL MALEATE. [Concomitant]
     Active Substance: ENALAPRIL MALEATE
     Dosage: UNK, UNKNOWN
     Route: 065
  4. VYTORIN [Concomitant]
     Active Substance: EZETIMIBE\SIMVASTATIN
     Dosage: UNK, UNKNOWN
     Route: 065
  5. RIVOTRIL [Concomitant]
     Active Substance: CLONAZEPAM
     Indication: SLEEP DISORDER
     Dosage: UNK, UNKNOWN
     Route: 065

REACTIONS (6)
  - Blood glucose increased [Recovered/Resolved]
  - Optic neuropathy [Not Recovered/Not Resolved]
  - Medication error [Unknown]
  - Gait disturbance [Unknown]
  - Drug dose omission [Recovered/Resolved]
  - Cataract [Not Recovered/Not Resolved]

NARRATIVE: CASE EVENT DATE: 201509
